FAERS Safety Report 6067071-0 (Version None)
Quarter: 2009Q1

REPORT INFORMATION
  Report Type: 
  Country: None (occurrence: None)
  Receive Date: 20090204
  Receipt Date: 20090204
  Transmission Date: 20090719
  Serious: Yes (Other)
  Sender: FDA-Public Use
  Company Number: None

PATIENT
  Age: 33 Year
  Sex: Female
  Weight: 65.7716 kg

DRUGS (1)
  1. MIRENA [Suspect]
     Indication: CONTRACEPTION
     Dosage: 20 MCG DAY INTRA-UTERINE
     Route: 015
     Dates: start: 20071016, end: 20081115

REACTIONS (8)
  - ANXIETY [None]
  - BACK PAIN [None]
  - BREAST PAIN [None]
  - DEPRESSION [None]
  - FATIGUE [None]
  - HEADACHE [None]
  - INSOMNIA [None]
  - LOSS OF LIBIDO [None]
